FAERS Safety Report 4393999-3 (Version None)
Quarter: 2004Q3

REPORT INFORMATION
  Report Type: 
  Country: None (occurrence: None)
  Receive Date: 20040701
  Receipt Date: 20040618
  Transmission Date: 20050211
  Serious: Yes (Other)
  Sender: FDA-Public Use
  Company Number: US-JNJFOC-20040401666

PATIENT
  Age: 22 Year
  Sex: Female
  Weight: 71 kg

DRUGS (4)
  1. REMICADE [Suspect]
     Indication: COLITIS ULCERATIVE
  2. ASACOL (MESALAZINE) TABLETS [Concomitant]
  3. DICLOXACILLIN [Concomitant]
  4. IMURAN [Concomitant]

REACTIONS (7)
  - ABORTION SPONTANEOUS [None]
  - ANGIOPATHY [None]
  - CARDIOMYOPATHY [None]
  - DILATATION VENTRICULAR [None]
  - DRUG EXPOSURE DURING PREGNANCY [None]
  - LIVER FUNCTION TEST ABNORMAL [None]
  - ULTRASOUND LIVER ABNORMAL [None]
